FAERS Safety Report 21304957 (Version 1)
Quarter: 2022Q3

REPORT INFORMATION
  Report Type: Spontaneous
  Country: US (occurrence: US)
  Receive Date: 20220907
  Receipt Date: 20220907
  Transmission Date: 20221027
  Serious: No
  Sender: FDA-Public Use
  Company Number: US-GILEAD-2022-0596454

PATIENT
  Age: 64 Year
  Sex: Male

DRUGS (3)
  1. VEKLURY [Suspect]
     Active Substance: REMDESIVIR
     Indication: COVID-19
     Dosage: UNK
     Route: 065
     Dates: start: 202205
  2. BRAFTOVI [Suspect]
     Active Substance: ENCORAFENIB
     Indication: Metastatic malignant melanoma
     Dosage: 75 MG, 6 CAPSULES EVERY MORNING
     Route: 065
     Dates: start: 202106
  3. MEKTOVI [Suspect]
     Active Substance: BINIMETINIB
     Indication: Metastatic malignant melanoma
     Dosage: 15 MG, 3 IN THE MORNING AND THEN ANOTHER THREE IN THE EVENING
     Route: 065
     Dates: start: 202106

REACTIONS (3)
  - Alopecia [Unknown]
  - Alopecia [Unknown]
  - Drug interaction [Unknown]
